FAERS Safety Report 23014677 (Version 1)
Quarter: 2023Q4

REPORT INFORMATION
  Report Type: Spontaneous
  Country: US (occurrence: US)
  Receive Date: 20231002
  Receipt Date: 20231002
  Transmission Date: 20240110
  Serious: Yes (Other)
  Sender: FDA-Public Use
  Company Number: US-ORGANON-O2309USA003297

PATIENT
  Age: 28 Year
  Sex: Female
  Weight: 108.39 kg

DRUGS (1)
  1. NEXPLANON [Suspect]
     Active Substance: ETONOGESTREL
     Indication: Contraception
     Dosage: 1 IMPLANT OF 68 MG IN LEFT ARM
     Route: 059

REACTIONS (3)
  - Device dislocation [Recovered/Resolved]
  - Amenorrhoea [Unknown]
  - Overweight [Not Recovered/Not Resolved]
